FAERS Safety Report 9068589 (Version 1)
Quarter: 2013Q1

REPORT INFORMATION
  Report Type: Spontaneous
  Country: US (occurrence: None)
  Receive Date: 20130212
  Receipt Date: 20130212
  Transmission Date: 20140127
  Serious: Yes (Disabling)
  Sender: FDA-Public Use
  Company Number: None

PATIENT
  Age: 38 Year
  Sex: Male

DRUGS (1)
  1. SAPHRIS, 5 MG, SAPHRIS [Suspect]
     Dates: start: 20101022, end: 20130122

REACTIONS (2)
  - Personality change [None]
  - Psychiatric symptom [None]
